FAERS Safety Report 5020740-3 (Version None)
Quarter: 2006Q2

REPORT INFORMATION
  Report Type: 
  Country: None (occurrence: None)
  Receive Date: 20060601
  Receipt Date: 20060518
  Transmission Date: 20061013
  Serious: Yes (Life-Threatening)
  Sender: FDA-Public Use
  Company Number: 14070

PATIENT
  Age: 18 Year
  Sex: Female
  Weight: 45 kg

DRUGS (11)
  1. PROPOFOL [Suspect]
     Dosage: 80 MG ONCE IV
     Route: 042
     Dates: start: 20041003
  2. FENTANYL TRANSDERMAL SYSTEM [Suspect]
     Dosage: 100 MICROGRAM ONCE IV
     Route: 042
     Dates: start: 20041003
  3. MIDAZOLAM HCL [Suspect]
     Dosage: 1.5 MG ONCE IV
     Route: 042
     Dates: start: 20041003
  4. MORPHINE [Suspect]
     Dosage: 3 MG ONCE IV
     Route: 042
     Dates: start: 20041003
  5. PARECOXIB SODIUM [Suspect]
     Dosage: 40 MG ONCE IV
     Route: 042
     Dates: start: 20041003
  6. FLUVOXAMINE MALEATE [Concomitant]
  7. METOCLOPRAMIDE HYDROCHLORIDE [Concomitant]
  8. CLOBAZAM [Concomitant]
  9. BACLOFEN [Concomitant]
  10. TEGRETOL [Concomitant]
  11. EPILIM [Concomitant]

REACTIONS (5)
  - ANAESTHETIC COMPLICATION [None]
  - APNOEIC ATTACK [None]
  - RASH [None]
  - RESPIRATORY DEPRESSION [None]
  - SWELLING FACE [None]
